FAERS Safety Report 19789985 (Version 6)
Quarter: 2022Q2

REPORT INFORMATION
  Report Type: Report from Study
  Country: US (occurrence: US)
  Receive Date: 20210904
  Receipt Date: 20220405
  Transmission Date: 20220721
  Serious: Yes (Other)
  Sender: FDA-Public Use
  Company Number: NVSC2021US200646

PATIENT
  Sex: Female

DRUGS (1)
  1. ENTRESTO [Suspect]
     Active Substance: SACUBITRIL\VALSARTAN
     Indication: Product used for unknown indication
     Dosage: 1 DF, BID (97/103 MG)
     Route: 048

REACTIONS (10)
  - Atrial fibrillation [Unknown]
  - Palpitations [Unknown]
  - Dyspnoea [Unknown]
  - Joint swelling [Unknown]
  - Dysstasia [Unknown]
  - Weight increased [Unknown]
  - Heart rate decreased [Unknown]
  - Feeling abnormal [Unknown]
  - Dyspnoea exertional [Unknown]
  - Asthenia [Unknown]
